FAERS Safety Report 20859031 (Version 2)
Quarter: 2022Q2

REPORT INFORMATION
  Report Type: Report from Study
  Country: ES (occurrence: ES)
  Receive Date: 20220523
  Receipt Date: 20220608
  Transmission Date: 20220721
  Serious: Yes (Disabling, Other)
  Sender: FDA-Public Use
  Company Number: ES-AUROBINDO-AUR-APL-2022-018284

PATIENT
  Age: 49 Year
  Sex: Male

DRUGS (2)
  1. BUPIVACAINE [Suspect]
     Active Substance: BUPIVACAINE
     Indication: Nerve block
     Dosage: 2.5ML OF RETROBULBAR BLOCK, TOTAL DOSE (LIDO+BUPI = 2.5 ML)
     Route: 056
  2. LIDOCAINE [Suspect]
     Active Substance: LIDOCAINE
     Indication: Nerve block
     Dosage: TOTAL DOSE (LIDO+BUPI = 2.5 ML)
     Route: 056

REACTIONS (2)
  - Acute macular neuroretinopathy [Recovered/Resolved with Sequelae]
  - Visual impairment [Unknown]
